FAERS Safety Report 25206636 (Version 1)
Quarter: 2025Q2

REPORT INFORMATION
  Report Type: Spontaneous
  Country: CA (occurrence: CA)
  Receive Date: 20250417
  Receipt Date: 20250417
  Transmission Date: 20250717
  Serious: Yes (Other)
  Sender: HETERO
  Company Number: CA-AMAROX PHARMA-HET2025CA01872

PATIENT
  Sex: Female

DRUGS (3)
  1. ARIPIPRAZOLE [Suspect]
     Active Substance: ARIPIPRAZOLE
     Indication: Psychotic disorder
     Route: 065
     Dates: start: 2019
  2. ARIPIPRAZOLE [Suspect]
     Active Substance: ARIPIPRAZOLE
     Route: 065
     Dates: start: 2021
  3. ARIPIPRAZOLE [Suspect]
     Active Substance: ARIPIPRAZOLE
     Route: 065
     Dates: start: 2023, end: 2023

REACTIONS (1)
  - Substance use disorder [Recovering/Resolving]
